FAERS Safety Report 25699028 (Version 1)
Quarter: 2025Q3

REPORT INFORMATION
  Report Type: Spontaneous
  Country: US (occurrence: US)
  Receive Date: 20250819
  Receipt Date: 20250819
  Transmission Date: 20251021
  Serious: No
  Sender: JOHNSON AND JOHNSON
  Company Number: US-JNJFOC-20250819487

PATIENT
  Age: 47 Year
  Sex: Female

DRUGS (2)
  1. SPRAVATO [Suspect]
     Active Substance: ESKETAMINE
     Indication: Product used for unknown indication
     Route: 045
  2. SPRAVATO [Suspect]
     Active Substance: ESKETAMINE
     Route: 045

REACTIONS (11)
  - Anxiety [Unknown]
  - Brain fog [Unknown]
  - Feeling abnormal [Unknown]
  - Bradyphrenia [Unknown]
  - Incorrect dose administered [Unknown]
  - Burning sensation [Unknown]
  - Sensory processing sensitivity [Unknown]
  - Impaired driving ability [Unknown]
  - Memory impairment [Unknown]
  - Depressed mood [Unknown]
  - Off label use [Unknown]

NARRATIVE: CASE EVENT DATE: 20250808
